FAERS Safety Report 4725386-X (Version None)
Quarter: 2005Q3

REPORT INFORMATION
  Report Type: 
  Country: None (occurrence: None)
  Receive Date: 20050721
  Receipt Date: 20050602
  Transmission Date: 20060218
  Serious: No
  Sender: FDA-Public Use
  Company Number: 2005SP001195

PATIENT
  Age: 72 Year
  Sex: Female
  Weight: 63.5036 kg

DRUGS (6)
  1. LUNESTA [Suspect]
     Indication: INSOMNIA
     Dosage: 1.5 MG;HS;ORAL;  3 MG;HS;ORAL
     Route: 048
     Dates: start: 20050521
  2. WELLBUTRIN [Concomitant]
  3. PRILOSEC [Concomitant]
  4. ESTRADIOL [Concomitant]
  5. TYLENOL [Concomitant]
  6. IBUPROFEN [Concomitant]

REACTIONS (2)
  - DRUG INEFFECTIVE [None]
  - MIDDLE INSOMNIA [None]
